FAERS Safety Report 4607259-6 (Version None)
Quarter: 2005Q1

REPORT INFORMATION
  Report Type: 
  Country: None (occurrence: None)
  Receive Date: 20050314
  Receipt Date: 20050307
  Transmission Date: 20050727
  Serious: Yes (Death)
  Sender: FDA-Public Use
  Company Number: FR-BRISTOL-MYERS SQUIBB COMPANY-12895397

PATIENT
  Age: 14 Year
  Sex: Male

DRUGS (8)
  1. CYCLOPHOSPHAMIDE [Suspect]
     Indication: BONE NEOPLASM MALIGNANT
  2. DOXORUBICIN HCL [Suspect]
     Indication: BONE NEOPLASM MALIGNANT
     Dosage: DAYS 1-3
  3. ETOPOSIDE [Suspect]
     Indication: BONE NEOPLASM MALIGNANT
     Dosage: DAYS 1-3
  4. IFOSFAMIDE [Suspect]
     Indication: BONE NEOPLASM MALIGNANT
     Dosage: DAYS 1-3
  5. MELPHALAN [Suspect]
     Indication: BONE NEOPLASM MALIGNANT
  6. BUSULFAN [Suspect]
     Indication: BONE NEOPLASM MALIGNANT
  7. VINCRISTINE [Suspect]
     Indication: BONE NEOPLASM MALIGNANT
     Dosage: DAY 1
  8. THIOTEPA [Suspect]
     Indication: BONE NEOPLASM MALIGNANT
     Dosage: DAYS 6-4

REACTIONS (2)
  - HEPATOTOXICITY [None]
  - PORTAL VEIN THROMBOSIS [None]
